FAERS Safety Report 13107849 (Version 2)
Quarter: 2017Q2

REPORT INFORMATION
  Report Type: Spontaneous
  Country: FR (occurrence: FR)
  Receive Date: 20170112
  Receipt Date: 20170420
  Transmission Date: 20170830
  Serious: Yes (Hospitalization, Disabling, Other)
  Sender: FDA-Public Use
  Company Number: FR-BRISTOL-MYERS SQUIBB COMPANY-BMS-2017-001069

PATIENT
  Age: 55 Year
  Sex: Female

DRUGS (5)
  1. SOLU-MEDROL [Suspect]
     Active Substance: METHYLPREDNISOLONE SODIUM SUCCINATE
     Indication: BRONCHIAL CARCINOMA
     Dosage: 60 MG, UNK
     Route: 042
     Dates: start: 20161116
  2. TAXOTERE [Suspect]
     Active Substance: DOCETAXEL
     Indication: BRONCHIAL CARCINOMA
     Dosage: 140 MG, UNK
     Route: 042
     Dates: start: 20161116
  3. ONDANSETRON [Suspect]
     Active Substance: ONDANSETRON
     Indication: BRONCHIAL CARCINOMA
     Dosage: UNK
     Route: 042
     Dates: start: 20161116
  4. OPDIVO [Suspect]
     Active Substance: NIVOLUMAB
     Indication: BRONCHIAL CARCINOMA
     Dosage: 220 MG, Q2WK
     Route: 042
     Dates: start: 20160721, end: 20161028
  5. POLARAMINE [Suspect]
     Active Substance: DEXCHLORPHENIRAMINE MALEATE
     Indication: BRONCHIAL CARCINOMA
     Dosage: 60 MG, UNK
     Route: 042
     Dates: start: 20161116

REACTIONS (7)
  - Malignant neoplasm progression [Unknown]
  - Renal failure [Not Recovered/Not Resolved]
  - Hypofibrinogenaemia [Recovered/Resolved]
  - Pyrexia [Unknown]
  - Jaundice cholestatic [Unknown]
  - Hospitalisation [Unknown]
  - Malnutrition [Unknown]

NARRATIVE: CASE EVENT DATE: 20161205
